FAERS Safety Report 14213306 (Version 2)
Quarter: 2018Q1

REPORT INFORMATION
  Report Type: Report from Study
  Country: US (occurrence: US)
  Receive Date: 20171122
  Receipt Date: 20180117
  Transmission Date: 20180508
  Serious: No
  Sender: FDA-Public Use
  Company Number: PHEH2017US037526

PATIENT
  Sex: Male
  Weight: 130 kg

DRUGS (1)
  1. ENTRESTO [Suspect]
     Active Substance: SACUBITRIL\VALSARTAN
     Indication: CARDIOMYOPATHY
     Dosage: 1 DF (97 MG SACUBITRIL, 103 MG VALSARTAN), UNK
     Route: 048
     Dates: start: 20161024

REACTIONS (2)
  - Product use in unapproved indication [Unknown]
  - Memory impairment [Unknown]
